FAERS Safety Report 10043998 (Version 1)
Quarter: 2014Q1

REPORT INFORMATION
  Report Type: Spontaneous
  Country: US (occurrence: US)
  Receive Date: 20140328
  Receipt Date: 20140328
  Transmission Date: 20141002
  Serious: No
  Sender: FDA-Public Use
  Company Number: US-MYLANLABS-2013S1014624

PATIENT
  Age: 57 Year
  Sex: Female

DRUGS (7)
  1. EMSAM (SELEGILINE TRANSDERMAL SYSTEM) [Suspect]
     Indication: BIPOLAR DISORDER
     Dosage: QD
     Route: 062
     Dates: start: 20130621, end: 20130625
  2. EMSAM (SELEGILINE TRANSDERMAL SYSTEM) [Suspect]
     Indication: OFF LABEL USE
     Dosage: QD
     Route: 062
     Dates: start: 20130621, end: 20130625
  3. EMSAM (SELEGILINE TRANSDERMAL SYSTEM) [Suspect]
     Indication: BIPOLAR DISORDER
     Dosage: QD
     Route: 062
     Dates: start: 20130626
  4. EMSAM (SELEGILINE TRANSDERMAL SYSTEM) [Suspect]
     Indication: OFF LABEL USE
     Dosage: QD
     Route: 062
     Dates: start: 20130626
  5. LITHIUM CARBONATE [Concomitant]
     Dosage: TAKEN FOR 25 YEARS
     Dates: start: 1988
  6. KLONOPIN [Concomitant]
     Indication: INSOMNIA
     Dosage: 1/2; TAKEN FOR YEARS
     Route: 048
  7. THYROID THERAPY [Concomitant]
     Indication: HYPOTHYROIDISM
     Dosage: TAKEN FOR YEARS

REACTIONS (3)
  - Tardive dyskinesia [Recovering/Resolving]
  - Hypersomnia [Recovered/Resolved]
  - Mood swings [Recovered/Resolved]
